FAERS Safety Report 8259671-4 (Version None)
Quarter: 2012Q2

REPORT INFORMATION
  Report Type: 
  Country: None (occurrence: None)
  Receive Date: 20120404
  Receipt Date: 20120327
  Transmission Date: 20120825
  Serious: Yes (Hospitalization, Disabling, Other)
  Sender: FDA-Public Use
  Company Number: US-ASTRAZENECA-2011SE01696

PATIENT
  Age: 53 Year
  Sex: Female

DRUGS (1)
  1. NEXIUM [Suspect]
     Route: 048

REACTIONS (12)
  - ADVERSE EVENT [None]
  - INTERVERTEBRAL DISC PROTRUSION [None]
  - IMMOBILE [None]
  - GASTRIC DISORDER [None]
  - HELICOBACTER INFECTION [None]
  - GAIT DISTURBANCE [None]
  - BACK DISORDER [None]
  - PNEUMONIA [None]
  - INTERVERTEBRAL DISC INJURY [None]
  - SPINAL FRACTURE [None]
  - MALAISE [None]
  - BLADDER CANCER [None]
